FAERS Safety Report 18681492 (Version 2)
Quarter: 2021Q1

REPORT INFORMATION
  Report Type: Spontaneous
  Country: US (occurrence: US)
  Receive Date: 20201230
  Receipt Date: 20210104
  Transmission Date: 20210419
  Serious: Yes (Hospitalization, Other)
  Sender: FDA-Public Use
  Company Number: US-PFIZER INC-2020509645

PATIENT
  Age: 28 Year
  Sex: Male
  Weight: 83.9 kg

DRUGS (3)
  1. CONTROL [BROMHEXINE HYDROCHLORIDE;CHLORPHENAMINE MALEATE;DEXTROMETHORP [Concomitant]
     Dosage: UNK
  2. NARDIL [Suspect]
     Active Substance: PHENELZINE SULFATE
     Indication: DEPRESSION
     Dosage: 15 MG, 4X/DAY
  3. PHENYLPROPANOLAMINE [Interacting]
     Active Substance: PHENYLPROPANOLAMINE
     Indication: DECREASED APPETITE
     Dosage: 75 MG

REACTIONS (3)
  - Drug interaction [Unknown]
  - Hypertensive crisis [Unknown]
  - Headache [Unknown]
